FAERS Safety Report 16958746 (Version 1)
Quarter: 2019Q4

REPORT INFORMATION
  Report Type: Spontaneous
  Country: US (occurrence: US)
  Receive Date: 20191024
  Receipt Date: 20191024
  Transmission Date: 20200122
  Serious: No
  Sender: FDA-Public Use
  Company Number: US-VALIDUS PHARMACEUTICALS LLC-US-2019VAL000273

PATIENT
  Sex: Female

DRUGS (5)
  1. HIPREX [Suspect]
     Active Substance: METHENAMINE HIPPURATE
     Indication: URINARY TRACT INFECTION
     Dosage: UNK
     Route: 065
  2. HIPREX [Suspect]
     Active Substance: METHENAMINE HIPPURATE
     Dosage: 1 DF, UNK
     Route: 065
     Dates: start: 20190503
  3. HIPREX [Suspect]
     Active Substance: METHENAMINE HIPPURATE
     Dosage: 2 DF, UNK
     Route: 065
     Dates: start: 20190502
  4. ESTRADIOL. [Concomitant]
     Active Substance: ESTRADIOL
     Indication: PRODUCT USED FOR UNKNOWN INDICATION
     Dosage: UNK
     Route: 065
  5. ESTRADIOL. [Suspect]
     Active Substance: ESTRADIOL
     Indication: PRODUCT USED FOR UNKNOWN INDICATION
     Dosage: VAGINAL INSERT
     Route: 067

REACTIONS (2)
  - Vomiting [Unknown]
  - Migraine with aura [Unknown]

NARRATIVE: CASE EVENT DATE: 20190503
